FAERS Safety Report 16366165 (Version 1)
Quarter: 2019Q3

REPORT INFORMATION
  Report Type: Spontaneous
  Country: US (occurrence: US)
  Receive Date: 20190528
  Receipt Date: 20190528
  Transmission Date: 20191004
  Serious: Yes (Other)
  Sender: FDA-Public Use
  Company Number: None

PATIENT
  Age: 62 Year
  Sex: Female
  Weight: 45 kg

DRUGS (3)
  1. XHANCE [Suspect]
     Active Substance: FLUTICASONE PROPIONATE
     Indication: CHRONIC SINUSITIS
     Dosage: ?          QUANTITY:1 SPRAY(S);OTHER ROUTE:SPRAYED INTO NOSE?
     Dates: start: 20190518, end: 20190522
  2. AMBIENCE 5MG [Concomitant]
  3. REMERON [Concomitant]
     Active Substance: MIRTAZAPINE

REACTIONS (5)
  - Suspected product contamination [None]
  - Serratia infection [None]
  - Laryngitis [None]
  - Productive cough [None]
  - Sinusitis [None]

NARRATIVE: CASE EVENT DATE: 20190522
